FAERS Safety Report 4357899-7 (Version None)
Quarter: 2004Q2

REPORT INFORMATION
  Report Type: 
  Country: None (occurrence: None)
  Receive Date: 20040513
  Receipt Date: 20040513
  Transmission Date: 20050107
  Serious: Yes (Death)
  Sender: FDA-Public Use
  Company Number: None

PATIENT
  Age: 46 Year
  Sex: Male
  Weight: 64.5 kg

DRUGS (1)
  1. DOCETAXEL [Suspect]

REACTIONS (3)
  - ARTHRALGIA [None]
  - DYSPNOEA [None]
  - PULMONARY HAEMORRHAGE [None]
